FAERS Safety Report 4803650-3 (Version None)
Quarter: 2005Q4

REPORT INFORMATION
  Report Type: 
  Country: None (occurrence: None)
  Receive Date: 20051014
  Receipt Date: 20041007
  Transmission Date: 20060501
  Serious: Yes (Life-Threatening, Hospitalization)
  Sender: FDA-Public Use
  Company Number: 04P-163-0267201-00

PATIENT
  Age: 50 Year
  Sex: Male

DRUGS (19)
  1. KALETRA [Suspect]
     Indication: HIV INFECTION
     Dosage: 1 DOSAGE FORMS, 2 IN 1 D
     Dates: start: 20031021, end: 20040603
  2. STAVUDINE [Suspect]
     Indication: HIV INFECTION
     Dosage: 100 MG, 1 IN 1 D
     Dates: start: 20031021, end: 20040603
  3. EMTRICITABINE [Suspect]
     Indication: HIV INFECTION
     Dosage: 200 MG, 1 IN 1 D
     Dates: start: 20031021, end: 20040603
  4. GEMFIBROZIL [Suspect]
     Indication: BLOOD TRIGLYCERIDES INCREASED
     Dosage: 600 MG, 2 IN 1 D
     Dates: start: 20040218, end: 20040407
  5. VICODIN [Concomitant]
  6. FLUCONAZOLE [Concomitant]
  7. BACTRIM DS [Concomitant]
  8. AZITHROMYCIN [Concomitant]
  9. ACETAMINOPHEN [Concomitant]
  10. PROMETHAZINE [Concomitant]
  11. METHADONE [Concomitant]
  12. DEXAMETHASONE [Concomitant]
  13. FLUDROCORTISONE ACETATE [Concomitant]
  14. DRONABINOL [Concomitant]
  15. MULTI-VITAMINS [Concomitant]
  16. VALGANCICLOVIR [Concomitant]
  17. SALBUTAMOL [Concomitant]
  18. OMEPRAZOLE [Concomitant]
  19. IMODIUM [Concomitant]

REACTIONS (9)
  - ABDOMINAL PAIN [None]
  - ASPARTATE AMINOTRANSFERASE INCREASED [None]
  - BLOOD BILIRUBIN INCREASED [None]
  - BLOOD TRIGLYCERIDES INCREASED [None]
  - CARBON DIOXIDE DECREASED [None]
  - CYTOMEGALOVIRUS CHORIORETINITIS [None]
  - HEADACHE [None]
  - NAUSEA [None]
  - VOMITING [None]
